FAERS Safety Report 7927100 (Version 3)
Quarter: 2013Q1

REPORT INFORMATION
  Report Type: Spontaneous
  Country: US (occurrence: US)
  Receive Date: 20110502
  Receipt Date: 20130104
  Transmission Date: 20140127
  Serious: No
  Sender: FDA-Public Use
  Company Number: US-ASTRAZENECA-2011SE07167

PATIENT
  Age: 72 Year
  Sex: Female

DRUGS (5)
  1. NEXIUM [Suspect]
     Route: 048
  2. NEXIUM [Suspect]
     Route: 048
  3. TOPROL XL [Suspect]
     Route: 048
  4. CRESTOR [Suspect]
     Route: 048
  5. PREVACID [Concomitant]

REACTIONS (7)
  - Gastrooesophageal reflux disease [Unknown]
  - Gastroenteritis viral [Unknown]
  - Parkinsonism [Unknown]
  - Malaise [Unknown]
  - Tremor [Unknown]
  - Drug prescribing error [Unknown]
  - Drug effect incomplete [Unknown]
